FAERS Safety Report 5995223-4 (Version None)
Quarter: 2008Q4

REPORT INFORMATION
  Report Type: 
  Country: None (occurrence: None)
  Receive Date: 20081212
  Receipt Date: 20080923
  Transmission Date: 20090506
  Serious: No
  Sender: FDA-Public Use
  Company Number: US-ABBOTT-08P-163-0478043-00

PATIENT
  Sex: Female
  Weight: 69.916 kg

DRUGS (2)
  1. HUMIRA [Suspect]
     Indication: RHEUMATOID ARTHRITIS
     Route: 050
     Dates: start: 20080201, end: 20080601
  2. HUMIRA [Suspect]
     Route: 050
     Dates: start: 20080601

REACTIONS (7)
  - ACTIVATED PARTIAL THROMBOPLASTIN TIME ABNORMAL [None]
  - DRUG INEFFECTIVE [None]
  - GLOBULIN ABNORMAL [None]
  - HAEMOGLOBIN ABNORMAL [None]
  - LABORATORY TEST ABNORMAL [None]
  - NEUTROPHIL COUNT ABNORMAL [None]
  - PLATELET COUNT ABNORMAL [None]
